FAERS Safety Report 19469018 (Version 2)
Quarter: 2021Q3

REPORT INFORMATION
  Report Type: Spontaneous
  Country: GR (occurrence: GR)
  Receive Date: 20210628
  Receipt Date: 20210706
  Transmission Date: 20211014
  Serious: Yes (Other)
  Sender: FDA-Public Use
  Company Number: GR-ABBVIE-21K-066-3967694-00

PATIENT
  Age: 67 Year
  Sex: Female

DRUGS (8)
  1. ADALIMUMAB [Suspect]
     Active Substance: ADALIMUMAB
     Indication: IRIDOCYCLITIS
  2. METHOTREXATE. [Concomitant]
     Active Substance: METHOTREXATE
     Indication: IRIDOCYCLITIS
  3. ADALIMUMAB [Suspect]
     Active Substance: ADALIMUMAB
     Indication: SPONDYLOARTHROPATHY
     Route: 058
     Dates: start: 201909, end: 2020
  4. METHOTREXATE. [Concomitant]
     Active Substance: METHOTREXATE
     Indication: CROHN^S DISEASE
     Dates: end: 2019
  5. ADALIMUMAB [Suspect]
     Active Substance: ADALIMUMAB
     Indication: SPONDYLOARTHROPATHY
  6. METHOTREXATE. [Concomitant]
     Active Substance: METHOTREXATE
     Indication: SPONDYLOARTHROPATHY
  7. ADALIMUMAB [Suspect]
     Active Substance: ADALIMUMAB
     Indication: CROHN^S DISEASE
     Route: 058
     Dates: end: 2019
  8. METHOTREXATE. [Concomitant]
     Active Substance: METHOTREXATE
     Indication: SPONDYLOARTHROPATHY

REACTIONS (14)
  - Inflammation [Unknown]
  - Cryptococcosis [Unknown]
  - Granuloma [Unknown]
  - Traumatic lung injury [Unknown]
  - Vascular stenosis [Unknown]
  - Respiratory tract infection [Not Recovered/Not Resolved]
  - Bronchitis [Unknown]
  - Sputum abnormal [Unknown]
  - Unevaluable event [Unknown]
  - Off label use [Unknown]
  - Bronchial irritation [Unknown]
  - Pseudomonas test positive [Recovering/Resolving]
  - Vasculitis [Unknown]
  - Aspergillus infection [Unknown]

NARRATIVE: CASE EVENT DATE: 201902
